FAERS Safety Report 17277009 (Version 3)
Quarter: 2020Q3

REPORT INFORMATION
  Report Type: Spontaneous
  Country: US (occurrence: US)
  Receive Date: 20200116
  Receipt Date: 20200923
  Transmission Date: 20201102
  Serious: No
  Sender: FDA-Public Use
  Company Number: US-PFIZER INC-2020020451

PATIENT
  Age: 3 Year
  Sex: Male
  Weight: 13.3 kg

DRUGS (1)
  1. GENOTROPIN MQ [Suspect]
     Active Substance: SOMATROPIN
     Dosage: 0.4 MG, DAILY

REACTIONS (4)
  - Fear of injection [Unknown]
  - Product complaint [Unknown]
  - Needle issue [Unknown]
  - Wrong technique in device usage process [Unknown]
